FAERS Safety Report 6531998-3 (Version None)
Quarter: 2010Q1

REPORT INFORMATION
  Report Type: 
  Country: None (occurrence: None)
  Receive Date: 20100107
  Receipt Date: 20100107
  Transmission Date: 20100710
  Serious: Yes (Life-Threatening, Hospitalization)
  Sender: FDA-Public Use
  Company Number: None

PATIENT
  Age: 70 Year
  Sex: Male

DRUGS (1)
  1. HEPARIN [Suspect]
     Indication: THROMBOSIS PROPHYLAXIS
     Dosage: BID SQ
     Route: 058
     Dates: start: 20091102, end: 20091125

REACTIONS (10)
  - ATRIAL FIBRILLATION [None]
  - BRADYCARDIA [None]
  - GOUTY ARTHRITIS [None]
  - HAEMODIALYSIS [None]
  - HYPOTENSION [None]
  - LEUKAEMOID REACTION [None]
  - MENTAL STATUS CHANGES [None]
  - RENAL TUBULAR NECROSIS [None]
  - RESPIRATORY DISTRESS [None]
  - SYSTEMIC INFLAMMATORY RESPONSE SYNDROME [None]
